FAERS Safety Report 8582498-0 (Version None)
Quarter: 2012Q3

REPORT INFORMATION
  Report Type: 
  Country: None (occurrence: None)
  Receive Date: 20120809
  Receipt Date: 20120730
  Transmission Date: 20120928
  Serious: Yes (Other)
  Sender: FDA-Public Use
  Company Number: US-ROCHE-1094579

PATIENT
  Sex: Female

DRUGS (4)
  1. FOSAMAX [Suspect]
     Indication: OSTEITIS DEFORMANS
     Dates: start: 19980101, end: 20060101
  2. BONIVA [Suspect]
     Indication: OSTEOPOROSIS
     Dates: start: 20060101, end: 20101001
  3. BONIVA [Suspect]
     Indication: OSTEITIS DEFORMANS
  4. FOSAMAX [Suspect]
     Indication: OSTEOPOROSIS
     Dates: start: 20070301, end: 20101001

REACTIONS (6)
  - BONE DISORDER [None]
  - LOW TURNOVER OSTEOPATHY [None]
  - ANXIETY [None]
  - STRESS FRACTURE [None]
  - EMOTIONAL DISTRESS [None]
  - FEMUR FRACTURE [None]
